FAERS Safety Report 8473565-0 (Version None)
Quarter: 2012Q2

REPORT INFORMATION
  Report Type: 
  Country: None (occurrence: None)
  Receive Date: 20120628
  Receipt Date: 20110822
  Transmission Date: 20120825
  Serious: Yes (Other)
  Sender: FDA-Public Use
  Company Number: US-MYLANLABS-2011S1011540

PATIENT
  Age: 50 Year
  Sex: Male
  Weight: 106.14 kg

DRUGS (18)
  1. REGLAN [Concomitant]
  2. WELLBUTRIN [Concomitant]
  3. ZOVIRAX [Concomitant]
  4. PRAVASTATIN [Concomitant]
  5. ACIPHEX [Concomitant]
  6. CYMBALTA [Concomitant]
  7. CLOZAPINE [Suspect]
     Dates: start: 20110725
  8. CLOZAPINE [Suspect]
     Dosage: 100MG TO 200MG TID
     Dates: end: 20110812
  9. KALETRA [Concomitant]
  10. CLOZAPINE [Suspect]
     Indication: SCHIZOPHRENIA
     Dates: start: 20090804, end: 20110601
  11. CLOZAPINE [Suspect]
     Dates: start: 20110601, end: 20110712
  12. EXELON [Concomitant]
  13. SOTALOL HYDROCHLORIDE [Concomitant]
  14. NAMENDA [Concomitant]
  15. CLOZAPINE [Suspect]
     Dates: start: 20110725
  16. ISENTRESS [Concomitant]
  17. COUMADIN [Concomitant]
  18. CLOZAPINE [Suspect]
     Dates: start: 20110601, end: 20110712

REACTIONS (2)
  - GRANULOCYTOPENIA [None]
  - LEUKOPENIA [None]
